FAERS Safety Report 9456097 (Version 1)
Quarter: 2013Q3

REPORT INFORMATION
  Report Type: Report from Study
  Country: US (occurrence: US)
  Receive Date: 20130813
  Receipt Date: 20130813
  Transmission Date: 20140515
  Serious: Yes (Death)
  Sender: FDA-Public Use
  Company Number: US-CUBIST PHARMACEUTICAL, INC.-2012S1000918

PATIENT
  Age: 43 Year
  Sex: Female
  Weight: 67.9 kg

DRUGS (1)
  1. CUBICIN [Suspect]
     Indication: STAPHYLOCOCCAL BACTERAEMIA
     Dosage: 7.4 MG/KG, Q24H
     Route: 042
     Dates: start: 20110124, end: 20110130

REACTIONS (1)
  - Death [Fatal]
